FAERS Safety Report 13937699 (Version 1)
Quarter: 2017Q3

REPORT INFORMATION
  Report Type: Spontaneous
  Country: US (occurrence: US)
  Receive Date: 20170905
  Receipt Date: 20170905
  Transmission Date: 20171127
  Serious: No
  Sender: FDA-Public Use
  Company Number: US-BAYER-2017-167516

PATIENT
  Age: 87 Year
  Sex: Male
  Weight: 56.96 kg

DRUGS (4)
  1. BAYER LOW DOSE [Suspect]
     Active Substance: ASPIRIN
     Indication: PRODUCT USED FOR UNKNOWN INDICATION
     Dosage: UNK
     Route: 048
  2. COUMADIN [Concomitant]
     Active Substance: WARFARIN SODIUM
     Dosage: UNK
  3. MIRALAX [Suspect]
     Active Substance: POLYETHYLENE GLYCOL 3350
     Indication: GASTROINTESTINAL DISORDER
     Dosage: 1/2 DOSE DAILY
     Route: 048
     Dates: start: 20170829
  4. BAYER LOW DOSE [Suspect]
     Active Substance: ASPIRIN
     Dosage: UNK
     Route: 048

REACTIONS (4)
  - Inappropriate prescribing [Unknown]
  - Product use issue [Unknown]
  - Therapeutic response unexpected [Unknown]
  - Product use issue [Unknown]

NARRATIVE: CASE EVENT DATE: 20170829
